FAERS Safety Report 18105045 (Version 1)
Quarter: 2020Q3

REPORT INFORMATION
  Report Type: Spontaneous
  Country: US (occurrence: US)
  Receive Date: 20200803
  Receipt Date: 20200803
  Transmission Date: 20201103
  Serious: No
  Sender: FDA-Public Use
  Company Number: US-SLATE RUN PHARMACEUTICALS-20US000241

PATIENT

DRUGS (1)
  1. VANCOMYCIN HYDROCHLORIDE USP [Suspect]
     Active Substance: VANCOMYCIN HYDROCHLORIDE
     Indication: FOETAL EXPOSURE DURING PREGNANCY
     Dosage: 1 GRAM, Q 12 HR
     Route: 064

REACTIONS (3)
  - Foetal exposure during pregnancy [Unknown]
  - Apgar score low [Unknown]
  - Premature baby [Unknown]
